FAERS Safety Report 13674652 (Version 1)
Quarter: 2017Q2

REPORT INFORMATION
  Report Type: Spontaneous
  Country: US (occurrence: US)
  Receive Date: 20170621
  Receipt Date: 20170621
  Transmission Date: 20170830
  Serious: No
  Sender: FDA-Public Use
  Company Number: US-TEVA-779222ACC

PATIENT
  Age: 24 Year
  Sex: Female
  Weight: 57.2 kg

DRUGS (2)
  1. SYNTHROID [Concomitant]
     Active Substance: LEVOTHYROXINE SODIUM
     Indication: HYPOTHYROIDISM
  2. PARAGARD T 380A [Suspect]
     Active Substance: COPPER
     Indication: CONTRACEPTION
     Dates: start: 20170511, end: 20170610

REACTIONS (6)
  - Exposure during breast feeding [Unknown]
  - Menorrhagia [Recovered/Resolved]
  - Abdominal pain lower [Unknown]
  - Back pain [Unknown]
  - Complication associated with device [Recovered/Resolved]
  - Vulvovaginal pain [Unknown]

NARRATIVE: CASE EVENT DATE: 20170602
